FAERS Safety Report 13262242 (Version 1)
Quarter: 2017Q1

REPORT INFORMATION
  Report Type: Spontaneous
  Country: US (occurrence: US)
  Receive Date: 20170222
  Receipt Date: 20170222
  Transmission Date: 20170428
  Serious: Yes (Other)
  Sender: FDA-Public Use
  Company Number: US-ROCHE-1897227

PATIENT
  Sex: Male

DRUGS (1)
  1. RITUXAN [Suspect]
     Active Substance: RITUXIMAB
     Indication: GRANULOMATOSIS WITH POLYANGIITIS
     Dosage: SEE ADDITIONAL INFORMATION ;ONGOING: NO
     Route: 041

REACTIONS (3)
  - Hypertension [Recovered/Resolved]
  - Transient ischaemic attack [Recovered/Resolved]
  - Amnesia [Recovered/Resolved]
